FAERS Safety Report 4898774-9 (Version None)
Quarter: 2006Q1

REPORT INFORMATION
  Report Type: 
  Country: None (occurrence: None)
  Receive Date: 20060202
  Receipt Date: 20060126
  Transmission Date: 20060701
  Serious: Yes (Hospitalization)
  Sender: FDA-Public Use
  Company Number: FR-ABBOTT-06P-056-0323539-00

PATIENT
  Age: 30 Year
  Sex: Female

DRUGS (4)
  1. VALPROATE CHRONO [Suspect]
     Indication: SUICIDE ATTEMPT
     Route: 048
     Dates: start: 19990722, end: 19990722
  2. VALPROATE CHRONO [Suspect]
     Indication: CONVULSION IN CHILDHOOD
  3. PHENYTOIN [Suspect]
     Indication: SUICIDE ATTEMPT
     Dates: start: 19990722, end: 19990722
  4. PHENYTOIN [Suspect]
     Indication: DRUG USE FOR UNKNOWN INDICATION

REACTIONS (4)
  - HYPOTENSION [None]
  - INTENTIONAL DRUG MISUSE [None]
  - INTENTIONAL OVERDOSE [None]
  - SUICIDE ATTEMPT [None]
